FAERS Safety Report 8299606-1 (Version None)
Quarter: 2012Q2

REPORT INFORMATION
  Report Type: 
  Country: None (occurrence: None)
  Receive Date: 20120419
  Receipt Date: 20120412
  Transmission Date: 20120825
  Serious: Yes (Life-Threatening, Hospitalization, Other)
  Sender: FDA-Public Use
  Company Number: US-GLAXOSMITHKLINE-A0973411A

PATIENT
  Sex: Male
  Weight: 3.3 kg

DRUGS (5)
  1. REQUIP [Suspect]
     Indication: RESTLESS LEGS SYNDROME
     Dosage: 1MG PER DAY
     Route: 064
     Dates: start: 20120207
  2. HYDROXYZINE [Concomitant]
  3. ZANTAC [Concomitant]
  4. VITAMIN AND MINERAL PRENATAL SUPPLEMENT W/ FOLIC ACID CAP [Concomitant]
  5. LABETALOL HCL [Concomitant]

REACTIONS (10)
  - WHITE BLOOD CELL COUNT INCREASED [None]
  - FEELING JITTERY [None]
  - DRUG WITHDRAWAL SYNDROME [None]
  - FOETAL EXPOSURE DURING PREGNANCY [None]
  - HYPERTENSION [None]
  - IRRITABILITY [None]
  - INFECTION [None]
  - MUSCULOSKELETAL STIFFNESS [None]
  - DYSKINESIA [None]
  - CONGENITAL PULMONARY HYPERTENSION [None]
